FAERS Safety Report 12838715 (Version 13)
Quarter: 2017Q3

REPORT INFORMATION
  Report Type: Spontaneous
  Country: US (occurrence: US)
  Receive Date: 20161012
  Receipt Date: 20170901
  Transmission Date: 20171127
  Serious: Yes (Other)
  Sender: FDA-Public Use
  Company Number: US-PFIZER INC-2016458655

PATIENT
  Age: 77 Year
  Sex: Female
  Weight: 70 kg

DRUGS (21)
  1. IBRANCE [Suspect]
     Active Substance: PALBOCICLIB
     Indication: BREAST CANCER METASTATIC
     Dosage: 100 MG, CYCLIC (DAILY X 21 DAYS: OFF 7 DAYS)
     Route: 048
     Dates: start: 201608, end: 2016
  2. FASLODEX [Concomitant]
     Active Substance: FULVESTRANT
     Indication: BREAST CANCER
     Dosage: UNK
     Dates: start: 201609
  3. ULTIMATE OMEGA [Concomitant]
     Dosage: UNK (1280 MG + 1000 IU D3)
  4. IBRANCE [Suspect]
     Active Substance: PALBOCICLIB
     Dosage: 100 MG, CYCLIC (DAYS 1-21 Q 28 DAYS)
     Route: 048
  5. IBRANCE [Suspect]
     Active Substance: PALBOCICLIB
     Dosage: 100 MG, CYCLIC (DAY1-21 Q 28 DAYS)
     Route: 048
  6. IBRANCE [Suspect]
     Active Substance: PALBOCICLIB
     Dosage: 100 MG, CYCLIC (DAYS 1-21 Q 28 DAYS)
     Route: 048
     Dates: start: 20160919
  7. IBRANCE [Suspect]
     Active Substance: PALBOCICLIB
     Dosage: 100 MG, CYCLIC (DAILY X 21 DAYS: OFF 7 DAYS)
     Route: 048
     Dates: start: 20160825
  8. VITAMIN D3 [Concomitant]
     Active Substance: CHOLECALCIFEROL
     Dosage: 2000 IU, DAILY
     Route: 048
  9. DULOXETINE. [Concomitant]
     Active Substance: DULOXETINE
     Dosage: 20 MG, DAILY
     Route: 048
     Dates: start: 20170705
  10. VALACYCLOVIR [Concomitant]
     Active Substance: VALACYCLOVIR HYDROCHLORIDE
     Indication: PROPHYLAXIS
     Dosage: 500 MG, DAILY
     Route: 048
     Dates: start: 20170214
  11. IBRANCE [Suspect]
     Active Substance: PALBOCICLIB
     Dosage: 100 MG, CYCLIC (DAY1-21 Q 28 DAYS)
     Route: 048
  12. IBRANCE [Suspect]
     Active Substance: PALBOCICLIB
     Dosage: 100 MG, CYCLIC (DAYS 1-21 Q 28 DAYS)
     Route: 048
     Dates: start: 20160919
  13. XGEVA [Concomitant]
     Active Substance: DENOSUMAB
     Indication: METASTASES TO BONE
     Dosage: UNK
     Dates: start: 201407
  14. IBRANCE [Suspect]
     Active Substance: PALBOCICLIB
     Dosage: 100 MG, CYCLIC (DAYS 1-21 Q 28 DAYS)
     Route: 048
  15. COZAAR [Concomitant]
     Active Substance: LOSARTAN POTASSIUM
     Dosage: 25 MG, DAILY
     Route: 048
  16. CALTRATE [Concomitant]
     Active Substance: CALCIUM CARBONATE
     Dosage: UNK, DAILY
  17. CEPHALEXIN. [Concomitant]
     Active Substance: CEPHALEXIN
     Dosage: 500 MG, DAILY
     Route: 048
  18. ECOTRIN [Concomitant]
     Active Substance: ASPIRIN
     Dosage: 81 MG, DAILY(LOW STRENGTH [ASPIRIN] )
     Route: 048
  19. LOPID [Concomitant]
     Active Substance: GEMFIBROZIL
     Dosage: 600 MG, DAILY
     Route: 048
  20. BENADRYL ALLERGY [Concomitant]
     Active Substance: DIPHENHYDRAMINE HYDROCHLORIDE
     Dosage: 25 MG, AS NEEDED
     Route: 048
  21. CRANBERRY. [Concomitant]
     Active Substance: CRANBERRY
     Dosage: UNK, DAILY(EXTRACT)

REACTIONS (19)
  - Gait disturbance [Recovered/Resolved]
  - Haemoglobin decreased [Unknown]
  - Fatigue [Unknown]
  - Joint warmth [Unknown]
  - Tenderness [Unknown]
  - Leukopenia [Not Recovered/Not Resolved]
  - Memory impairment [Not Recovered/Not Resolved]
  - Sinusitis [Recovered/Resolved]
  - Fall [Unknown]
  - Nervousness [Unknown]
  - Neuropathy peripheral [Not Recovered/Not Resolved]
  - Headache [Not Recovered/Not Resolved]
  - Dizziness [Unknown]
  - Anaemia [Not Recovered/Not Resolved]
  - Haematocrit decreased [Unknown]
  - Pigmentation disorder [Unknown]
  - End stage renal disease [Unknown]
  - Cystitis [Recovered/Resolved]
  - Contusion [Recovered/Resolved]

NARRATIVE: CASE EVENT DATE: 201608
